FAERS Safety Report 9696331 (Version 2)
Quarter: 2014Q1

REPORT INFORMATION
  Report Type: Spontaneous
  Country: DK (occurrence: FR)
  Receive Date: 20131119
  Receipt Date: 20140128
  Transmission Date: 20141002
  Serious: Yes (Other)
  Sender: FDA-Public Use
  Company Number: FR-FRI-1000051450

PATIENT
  Age: 31 Year
  Sex: Male
  Weight: 101 kg

DRUGS (8)
  1. ESCITALOPRAM [Suspect]
     Indication: DEPRESSION
     Dosage: 10 MG
     Dates: start: 20110617, end: 20110624
  2. ESCITALOPRAM [Suspect]
     Indication: DEPRESSION
     Dosage: 15 MG
     Dates: start: 20110624, end: 20110725
  3. LEXOMIL [Concomitant]
     Dosage: 1 DF
     Route: 048
     Dates: start: 20110527
  4. STILNOX [Concomitant]
     Dosage: 1 DF
     Route: 048
     Dates: start: 20110527, end: 20110603
  5. IMOVANE [Concomitant]
     Dosage: 1 DF
     Route: 048
     Dates: start: 20110603, end: 20110725
  6. AERIUS [Concomitant]
     Dosage: 1 DF
     Route: 048
     Dates: start: 20110709
  7. OMEPRAZOLE [Concomitant]
     Dosage: 10 MG
     Route: 048
     Dates: start: 20110624
  8. HUMALOG [Concomitant]

REACTIONS (3)
  - Drug-induced liver injury [Recovered/Resolved]
  - Blood bilirubin increased [Recovered/Resolved]
  - Jaundice [Recovered/Resolved]
